FAERS Safety Report 4434853-8 (Version None)
Quarter: 2004Q3

REPORT INFORMATION
  Report Type: 
  Country: None (occurrence: None)
  Receive Date: 20040726
  Receipt Date: 20040513
  Transmission Date: 20050211
  Serious: No
  Sender: FDA-Public Use
  Company Number: USA040566800

PATIENT
  Age: 56 Year
  Sex: Male

DRUGS (11)
  1. FORTEO [Suspect]
     Indication: OSTEOPOROSIS
     Dosage: 20 UG/ 1 IN THE EVENING
     Dates: start: 20040429
  2. ATENOLOL [Concomitant]
  3. CHOLESTYRAMINE [Concomitant]
  4. NITROFURANTOIN [Concomitant]
  5. OXYBUTYNIN CHLORIDE [Concomitant]
  6. DICLOFENAC SODIUM [Concomitant]
  7. CITRACAL (CALCIUM CITRATE) [Concomitant]
  8. VITAMIN E [Concomitant]
  9. VITAMIN C [Concomitant]
  10. VITAMIN B COMPLEX CAP [Concomitant]
  11. VITAMIN D [Concomitant]

REACTIONS (3)
  - BONE PAIN [None]
  - FATIGUE [None]
  - PAIN [None]
